FAERS Safety Report 6056862-8 (Version None)
Quarter: 2009Q1

REPORT INFORMATION
  Report Type: 
  Country: None (occurrence: None)
  Receive Date: 20090129
  Receipt Date: 20090123
  Transmission Date: 20090719
  Serious: Yes (Other)
  Sender: FDA-Public Use
  Company Number: A0757650A

PATIENT
  Age: 84 Year
  Sex: Male
  Weight: 75.9 kg

DRUGS (4)
  1. AVODART [Suspect]
     Indication: PROSTATIC DISORDER
     Dosage: .5MG PER DAY
     Route: 048
     Dates: start: 20080609, end: 20080915
  2. LASIX [Concomitant]
  3. POTASSIUM [Concomitant]
  4. ASPIRIN [Concomitant]

REACTIONS (4)
  - BREAST MASS [None]
  - BREAST PAIN [None]
  - BREAST TENDERNESS [None]
  - GYNAECOMASTIA [None]
